FAERS Safety Report 12486935 (Version 2)
Quarter: 2016Q3

REPORT INFORMATION
  Report Type: Spontaneous
  Country: GB (occurrence: None)
  Receive Date: 20160620
  Receipt Date: 20160727
  Transmission Date: 20161109
  Serious: Yes (Other)
  Sender: FDA-Public Use
  Company Number: GB2016K2693SPO

PATIENT
  Age: 55 Year
  Sex: Male
  Weight: 75 kg

DRUGS (5)
  1. LANSOPRAZOLE (LANSOPRAZOLE) UNKNOWN {LOT # VARIOUS} [Suspect]
     Active Substance: LANSOPRAZOLE
     Indication: BARRETT^S OESOPHAGUS
     Route: 048
     Dates: start: 19980301, end: 20150715
  2. RAMIPRIL. [Concomitant]
     Active Substance: RAMIPRIL
  3. COLLAGEN [Concomitant]
     Active Substance: COLLAGEN
  4. GLUCOSAMINE SULPHATE [Concomitant]
     Active Substance: GLUCOSAMINE
  5. SIMVASTATIN. [Concomitant]
     Active Substance: SIMVASTATIN

REACTIONS (4)
  - Gout [None]
  - Arthralgia [None]
  - Pain in extremity [None]
  - Joint swelling [None]

NARRATIVE: CASE EVENT DATE: 1998
